FAERS Safety Report 6621290-0 (Version None)
Quarter: 2010Q1

REPORT INFORMATION
  Report Type: 
  Country: None (occurrence: None)
  Receive Date: 20100309
  Receipt Date: 20100302
  Transmission Date: 20100710
  Serious: Yes (Other)
  Sender: FDA-Public Use
  Company Number: US-BAYER-201013918NA

PATIENT
  Sex: Female

DRUGS (7)
  1. AVELOX [Suspect]
     Indication: BRONCHITIS
     Dosage: ONE AVELOX
     Route: 065
     Dates: start: 20100125, end: 20100125
  2. CHANTIX [Concomitant]
     Route: 065
     Dates: start: 20100101
  3. BENADRYL [Concomitant]
     Route: 048
     Dates: start: 20100125
  4. PREDNISON [Concomitant]
     Dates: start: 20100125
  5. NORMAL SALINE [Concomitant]
     Route: 042
  6. PCN [Concomitant]
     Route: 065
  7. ERYTHROMYCINE [Concomitant]
     Route: 065

REACTIONS (7)
  - ANAPHYLACTIC REACTION [None]
  - OEDEMA PERIPHERAL [None]
  - PHARYNGEAL OEDEMA [None]
  - PRURITUS [None]
  - RASH [None]
  - SWELLING FACE [None]
  - WHEEZING [None]
